FAERS Safety Report 20695765 (Version 2)
Quarter: 2022Q2

REPORT INFORMATION
  Report Type: Spontaneous
  Country: JP (occurrence: JP)
  Receive Date: 20220411
  Receipt Date: 20220502
  Transmission Date: 20220721
  Serious: Yes (Hospitalization)
  Sender: FDA-Public Use
  Company Number: JP-ELI_LILLY_AND_COMPANY-JP202203011958

PATIENT
  Age: 74 Year
  Sex: Male

DRUGS (3)
  1. TRULICITY [Suspect]
     Active Substance: DULAGLUTIDE
     Indication: Diabetes mellitus
     Dosage: 0.75 MG, WEEKLY (1/W)
     Route: 058
  2. VOGLIBOSE [Concomitant]
     Active Substance: VOGLIBOSE
  3. MITIGLINIDE [Concomitant]
     Active Substance: MITIGLINIDE

REACTIONS (2)
  - Diabetes mellitus inadequate control [Unknown]
  - Nausea [Unknown]

NARRATIVE: CASE EVENT DATE: 20220328
